FAERS Safety Report 18331343 (Version 1)
Quarter: 2020Q3

REPORT INFORMATION
  Report Type: Spontaneous
  Country: DE (occurrence: DE)
  Receive Date: 20200930
  Receipt Date: 20200930
  Transmission Date: 20201103
  Serious: Yes (Hospitalization)
  Sender: FDA-Public Use
  Company Number: DE-ENDO PHARMACEUTICALS INC-2020-006418

PATIENT
  Age: 48 Year
  Sex: Female

DRUGS (1)
  1. QUETIAPINE FUMARATE. [Suspect]
     Active Substance: QUETIAPINE FUMARATE
     Indication: PRODUCT USED FOR UNKNOWN INDICATION
     Dosage: 18.2 G, SINGLE
     Route: 048

REACTIONS (4)
  - Bezoar [Unknown]
  - Coma [Unknown]
  - Suicide attempt [Unknown]
  - Toxicity to various agents [Unknown]
